FAERS Safety Report 4341849-3 (Version None)
Quarter: 2004Q2

REPORT INFORMATION
  Report Type: 
  Country: None (occurrence: None)
  Receive Date: 20040415
  Receipt Date: 20040405
  Transmission Date: 20050107
  Serious: Yes (Death, Hospitalization)
  Sender: FDA-Public Use
  Company Number: FR-JNJFOC-20040300870

PATIENT
  Age: 56 Year
  Sex: Female
  Weight: 97 kg

DRUGS (13)
  1. REMICADE [Suspect]
     Indication: RHEUMATOID ARTHRITIS
     Dosage: INTRAVENOUS
     Route: 042
     Dates: start: 20030210, end: 20040108
  2. HUMIRA [Suspect]
     Indication: RHEUMATOID ARTHRITIS
     Dosage: SUBCUTANEOUS
     Route: 058
     Dates: start: 20040129
  3. PREDNISONE TAB [Concomitant]
  4. PROPOFAN (PROPOFAN) [Concomitant]
  5. VIOXX [Concomitant]
  6. TRAMADOL HCL [Concomitant]
  7. METHOTREXATE [Concomitant]
  8. FOLIC ACID [Concomitant]
  9. CO-APROVEL (KARVEA HCT) [Concomitant]
  10. ISOPTIN [Concomitant]
  11. LEXOMIL (BROMAZEPAM) [Concomitant]
  12. OMEPRAZOLE [Concomitant]
  13. PREVISCAN (FLUINDIONE) [Concomitant]

REACTIONS (5)
  - ACUTE RESPIRATORY DISTRESS SYNDROME [None]
  - DRUG INTERACTION [None]
  - LOBAR PNEUMONIA [None]
  - MULTI-ORGAN FAILURE [None]
  - SEPTIC SHOCK [None]
